FAERS Safety Report 21566496 (Version 2)
Quarter: 2022Q4

REPORT INFORMATION
  Report Type: Report from Study
  Country: MX (occurrence: MX)
  Receive Date: 20221108
  Receipt Date: 20221117
  Transmission Date: 20230112
  Serious: Yes (Hospitalization)
  Sender: FDA-Public Use
  Company Number: MX-BAYER-2022A155409

PATIENT
  Age: 66 Year
  Sex: Male

DRUGS (1)
  1. NEXAVAR [Suspect]
     Active Substance: SORAFENIB
     Indication: Hepatocellular carcinoma
     Dosage: DAILY DOSE 600 MG (400 MG IN THE MORNING 200 MG IN THE AFTERNOON)
     Dates: start: 20221020, end: 20221103

REACTIONS (3)
  - Arrhythmia [Not Recovered/Not Resolved]
  - Off label use [None]
  - Hypertension [None]

NARRATIVE: CASE EVENT DATE: 20221104
